FAERS Safety Report 18524083 (Version 7)
Quarter: 2025Q4

REPORT INFORMATION
  Report Type: Spontaneous
  Country: EU (occurrence: EU)
  Receive Date: 20201119
  Receipt Date: 20251113
  Transmission Date: 20260117
  Serious: Yes (Hospitalization, Other)
  Sender: NOVARTIS
  Company Number: NVSC2020LT304848

PATIENT
  Age: 26 Year
  Sex: Female
  Weight: 48 kg

DRUGS (1)
  1. FINGOLIMOD [Suspect]
     Active Substance: FINGOLIMOD
     Indication: Multiple sclerosis relapse
     Dosage: UNK
     Route: 065
     Dates: start: 2016, end: 20200916

REACTIONS (19)
  - Immune reconstitution inflammatory syndrome [Recovered/Resolved]
  - Dysarthria [Recovered/Resolved]
  - Dysphagia [Recovered/Resolved]
  - Dysphonia [Unknown]
  - Hemiparesis [Unknown]
  - Areflexia [Unknown]
  - Ataxia [Unknown]
  - Extensor plantar response [Unknown]
  - Speech disorder [Unknown]
  - Aphasia [Recovered/Resolved]
  - Mental status changes [Recovered/Resolved]
  - Rebound effect [Recovering/Resolving]
  - Lymphopenia [Unknown]
  - Multiple sclerosis relapse [Unknown]
  - Ophthalmoplegia [Unknown]
  - Hemihypoaesthesia [Unknown]
  - Opportunistic infection [Unknown]
  - Herpes zoster [Unknown]
  - Stomatitis [Unknown]

NARRATIVE: CASE EVENT DATE: 20201030
